FAERS Safety Report 13861283 (Version 1)
Quarter: 2017Q3

REPORT INFORMATION
  Report Type: Spontaneous
  Country: US (occurrence: US)
  Receive Date: 20170811
  Receipt Date: 20170811
  Transmission Date: 20171127
  Serious: No
  Sender: FDA-Public Use
  Company Number: US-SHIRE-US201713920

PATIENT
  Sex: Female

DRUGS (1)
  1. XIIDRA [Suspect]
     Active Substance: LIFITEGRAST
     Indication: PRODUCT USED FOR UNKNOWN INDICATION
     Dosage: 2 GTT, 2X/DAY:BID
     Route: 047

REACTIONS (8)
  - Liquid product physical issue [Unknown]
  - Pruritus [Not Recovered/Not Resolved]
  - Instillation site pain [Not Recovered/Not Resolved]
  - Eye irritation [Unknown]
  - Product container issue [Unknown]
  - Tremor [Unknown]
  - Ocular hyperaemia [Unknown]
  - Inappropriate schedule of drug administration [Unknown]
